FAERS Safety Report 13907414 (Version 1)
Quarter: 2017Q3

REPORT INFORMATION
  Report Type: Spontaneous
  Country: US (occurrence: US)
  Receive Date: 20170825
  Receipt Date: 20170825
  Transmission Date: 20171127
  Serious: No
  Sender: FDA-Public Use
  Company Number: US-ROCHE-1012785

PATIENT
  Age: 9 Year
  Sex: Female

DRUGS (4)
  1. NUTROPIN [Suspect]
     Active Substance: SOMATROPIN
     Dosage: DAILY
     Route: 065
     Dates: start: 20120507, end: 20120514
  2. NUTROPIN [Suspect]
     Active Substance: SOMATROPIN
     Dosage: DAILY
     Route: 065
     Dates: start: 20120514
  3. NUTROPIN [Suspect]
     Active Substance: SOMATROPIN
     Dosage: DAILY
     Route: 065
     Dates: start: 20111207, end: 20120307
  4. NUTROPIN [Suspect]
     Active Substance: SOMATROPIN
     Indication: PRODUCT USED FOR UNKNOWN INDICATION
     Route: 058

REACTIONS (3)
  - Myalgia [Not Recovered/Not Resolved]
  - Sleep disorder [Recovered/Resolved]
  - Anger [Not Recovered/Not Resolved]

NARRATIVE: CASE EVENT DATE: 20111207
